FAERS Safety Report 6198139-6 (Version None)
Quarter: 2009Q2

REPORT INFORMATION
  Report Type: 
  Country: None (occurrence: None)
  Receive Date: 20090519
  Receipt Date: 20090508
  Transmission Date: 20091009
  Serious: Yes (Hospitalization)
  Sender: FDA-Public Use
  Company Number: 2008US002302

PATIENT
  Age: 63 Year
  Sex: Male
  Weight: 113.4 kg

DRUGS (20)
  1. AMEVIVE [Suspect]
     Indication: PSORIASIS
     Dosage: 15 MG, WEEKLY, INTRAMUSCULAR
     Route: 030
     Dates: start: 20060521
  2. AVODART [Concomitant]
  3. ASPIRIN [Concomitant]
  4. AMBIEN CR [Concomitant]
  5. BYETTA [Concomitant]
  6. CARVEDILOL [Concomitant]
  7. CELEBREX [Concomitant]
  8. CIELLA [Concomitant]
  9. FEXOFENADINE HCL [Concomitant]
  10. TAMSULOSIN HCL [Concomitant]
  11. IRON (IRON) [Concomitant]
  12. LASIX [Concomitant]
  13. LYRICA [Concomitant]
  14. MECLIZINE [Concomitant]
  15. NEXIUM [Concomitant]
  16. POTASSIUM (POTASSIUM) [Concomitant]
  17. SINGULAIR [Concomitant]
  18. SYNTHROID [Concomitant]
  19. TESTOSTERONE [Concomitant]
  20. VYTORIN [Concomitant]

REACTIONS (2)
  - BENIGN PROSTATIC HYPERPLASIA [None]
  - DIVERTICULITIS [None]
